FAERS Safety Report 10168467 (Version 1)
Quarter: 2014Q2

REPORT INFORMATION
  Report Type: Spontaneous
  Country: US (occurrence: US)
  Receive Date: 20140513
  Receipt Date: 20140513
  Transmission Date: 20141212
  Serious: No
  Sender: FDA-Public Use
  Company Number: US-B.I. PHARMACEUTICALS,INC./RIDGEFIELD-2014-BI-19994BP

PATIENT
  Age: 56 Year
  Sex: Male
  Weight: 100 kg

DRUGS (9)
  1. TRADJENTA [Suspect]
     Indication: DIABETES MELLITUS
     Dosage: 5 MG
     Route: 048
     Dates: start: 20140416, end: 20140503
  2. GLIPIZIDE [Concomitant]
     Indication: DIABETES MELLITUS
     Dosage: 30 MG
     Route: 048
  3. CLOPIDOGREL [Concomitant]
     Dosage: 75 MG
     Route: 048
  4. MEXILETINE [Concomitant]
     Indication: CARDIOVASCULAR DISORDER
     Dosage: 300 MG
     Route: 048
  5. SPIRONOLACTONE [Concomitant]
     Indication: PNEUMOTHORAX
     Dosage: 25 MG
     Route: 048
  6. HYDROCODONE [Concomitant]
     Indication: ARTHRITIS
     Route: 048
  7. METOLAZONE [Concomitant]
     Indication: PNEUMOTHORAX
     Dosage: 2.5 MG
     Route: 048
  8. TORSEMIDE [Concomitant]
     Indication: PNEUMOTHORAX
     Dosage: 40 MG
     Route: 048
  9. SOTALOL [Concomitant]
     Indication: CARDIOVASCULAR DISORDER
     Dosage: 160 MG
     Route: 048

REACTIONS (5)
  - Dizziness [Recovered/Resolved]
  - Loss of consciousness [Recovered/Resolved]
  - Nasal congestion [Not Recovered/Not Resolved]
  - Blood glucose increased [Not Recovered/Not Resolved]
  - Cough [Recovered/Resolved]
